FAERS Safety Report 15017834 (Version 1)
Quarter: 2018Q2

REPORT INFORMATION
  Report Type: Spontaneous
  Country: US (occurrence: US)
  Receive Date: 20180523
  Receipt Date: 20180523
  Transmission Date: 20180711
  Serious: Yes (Death)
  Sender: FDA-Public Use
  Company Number: None

PATIENT
  Age: 28 Year
  Sex: Male
  Weight: 68.04 kg

DRUGS (1)
  1. OMEPRAZOLE 20MG [Suspect]
     Active Substance: OMEPRAZOLE
     Indication: THROAT IRRITATION
     Dates: start: 20180211, end: 20180220

REACTIONS (3)
  - Fatigue [None]
  - Completed suicide [None]
  - Social avoidant behaviour [None]

NARRATIVE: CASE EVENT DATE: 20180221
